FAERS Safety Report 10706378 (Version 2)
Quarter: 2015Q1

REPORT INFORMATION
  Report Type: Spontaneous
  Country: DK (occurrence: DK)
  Receive Date: 20150113
  Receipt Date: 20150115
  Transmission Date: 20150721
  Serious: Yes (Other)
  Sender: FDA-Public Use
  Company Number: DK-TEVA-532289ISR

PATIENT
  Sex: Male

DRUGS (12)
  1. METHOTREXATE [Suspect]
     Active Substance: METHOTREXATE
     Indication: OFF LABEL USE
     Dosage: ON 12-AUG-2013 AND ON 2-SEP-2013 12 MG IN 4.8ML
     Route: 037
  2. IFOSFAMIDE. [Concomitant]
     Active Substance: IFOSFAMIDE
     Indication: BURKITT^S LYMPHOMA
  3. METHOTREXATE [Suspect]
     Active Substance: METHOTREXATE
     Indication: BURKITT^S LYMPHOMA
  4. CYTARABINE. [Concomitant]
     Active Substance: CYTARABINE
     Indication: BURKITT^S LYMPHOMA
     Dosage: 29-JUL,16-AUG AND 5-SEP 2013
     Dates: start: 20130729
  5. HJERTEMAGNYL [Concomitant]
     Active Substance: ASPIRIN\MAGNESIUM OXIDE
     Indication: STENT PLACEMENT
  6. ATORVASTATIN [Concomitant]
     Active Substance: ATORVASTATIN
     Indication: STENT PLACEMENT
     Dosage: 80 MILLIGRAM DAILY; DAILY DOSE: 80 MILLIGRAM
  7. BRILIQUE [Concomitant]
     Active Substance: TICAGRELOR
     Indication: STENT PLACEMENT
  8. DEXAMETHASONE. [Concomitant]
     Active Substance: DEXAMETHASONE
     Indication: BURKITT^S LYMPHOMA
     Dosage: HYPER-CVAD
  9. DOXORUBICIN [Concomitant]
     Active Substance: DOXORUBICIN
     Indication: BURKITT^S LYMPHOMA
     Dosage: HYPER-CVAD
  10. METHOTREXATE [Suspect]
     Active Substance: METHOTREXATE
     Indication: OFF LABEL USE
  11. VINCRISTINE [Concomitant]
     Active Substance: VINCRISTINE
     Indication: BURKITT^S LYMPHOMA
     Dosage: HYPER-CVAD
  12. CYCLOPHOSPHAMIDE. [Concomitant]
     Active Substance: CYCLOPHOSPHAMIDE
     Indication: BURKITT^S LYMPHOMA
     Dosage: HYPER-CVAD

REACTIONS (8)
  - Sensory disturbance [Not Recovered/Not Resolved]
  - Quadriplegia [Not Recovered/Not Resolved]
  - Bladder disorder [Not Recovered/Not Resolved]
  - Hypoaesthesia [Not Recovered/Not Resolved]
  - Myelopathy [Not Recovered/Not Resolved]
  - Paralysis [Not Recovered/Not Resolved]
  - Pain [Not Recovered/Not Resolved]
  - Gastrointestinal disorder [Not Recovered/Not Resolved]

NARRATIVE: CASE EVENT DATE: 201309
